FAERS Safety Report 8923564 (Version 1)
Quarter: 2012Q4

REPORT INFORMATION
  Report Type: Spontaneous
  Country: US (occurrence: None)
  Receive Date: 20121126
  Receipt Date: 20121126
  Transmission Date: 20130627
  Serious: Yes (Other)
  Sender: FDA-Public Use
  Company Number: None

PATIENT
  Age: 62 Year
  Sex: Female
  Weight: 79.38 kg

DRUGS (1)
  1. AVASTIN [Suspect]
     Indication: EYE OPERATION
     Dates: start: 20120420, end: 20120420

REACTIONS (13)
  - Eyelid disorder [None]
  - Blister [None]
  - Ocular hyperaemia [None]
  - Erythema [None]
  - Post procedural complication [None]
  - Eye irritation [None]
  - Eyelid oedema [None]
  - Hypersensitivity [None]
  - Swelling face [None]
  - Eye pain [None]
  - Eye swelling [None]
  - Erythema of eyelid [None]
  - Product contamination [None]
